FAERS Safety Report 13374934 (Version 1)
Quarter: 2017Q1

REPORT INFORMATION
  Report Type: Spontaneous
  Country: US (occurrence: US)
  Receive Date: 20170327
  Receipt Date: 20170327
  Transmission Date: 20170429
  Serious: No
  Sender: FDA-Public Use
  Company Number: US-009507513-1703USA004559

PATIENT
  Age: 75 Year
  Sex: Female

DRUGS (1)
  1. BELSOMRA [Suspect]
     Active Substance: SUVOREXANT
     Indication: INSOMNIA
     Dosage: 10 MG DAILY
     Route: 048
     Dates: start: 20170305

REACTIONS (7)
  - Headache [Recovered/Resolved]
  - Headache [Unknown]
  - Head discomfort [Not Recovered/Not Resolved]
  - Middle insomnia [Not Recovered/Not Resolved]
  - Feeling abnormal [Unknown]
  - Poor quality sleep [Not Recovered/Not Resolved]
  - Abnormal dreams [Unknown]

NARRATIVE: CASE EVENT DATE: 20170305
